FAERS Safety Report 17991488 (Version 2)
Quarter: 2021Q1

REPORT INFORMATION
  Report Type: Spontaneous
  Country: GB (occurrence: GB)
  Receive Date: 20200707
  Receipt Date: 20210203
  Transmission Date: 20210419
  Serious: Yes (Death, Other)
  Sender: FDA-Public Use
  Company Number: GB-PFIZER INC-2012085383

PATIENT
  Age: 6 Year
  Sex: Male

DRUGS (5)
  1. PROPOFOL. [Suspect]
     Active Substance: PROPOFOL
     Indication: SEDATION
     Dosage: 4?9.2 MG/KG/HOUR
     Route: 017
  2. AMOXYCILLIN [Concomitant]
     Active Substance: AMOXICILLIN
     Dosage: UNK
  3. ORCIPRENALINE [Concomitant]
     Active Substance: METAPROTERENOL
     Indication: WHEEZING
     Dosage: UNK
  4. AMPICILLIN [Concomitant]
     Active Substance: AMPICILLIN
     Indication: WHEEZING
     Dosage: UNK
  5. CHLORAMPHENICOL [Concomitant]
     Active Substance: CHLORAMPHENICOL
     Dosage: UNK

REACTIONS (6)
  - Off label use [Fatal]
  - Metabolic acidosis [Unknown]
  - Cardiac arrest [Fatal]
  - Hyperlipidaemia [Unknown]
  - Cardiac failure [Fatal]
  - Bradycardia [Fatal]
